FAERS Safety Report 12052924 (Version 1)
Quarter: 2016Q1

REPORT INFORMATION
  Report Type: Spontaneous
  Country: US (occurrence: US)
  Receive Date: 20160209
  Receipt Date: 20160209
  Transmission Date: 20160526
  Serious: No
  Sender: FDA-Public Use
  Company Number: US-CELGENEUS-USA-2016020923

PATIENT
  Age: 49 Year
  Sex: Female
  Weight: 125 kg

DRUGS (2)
  1. REVLIMID [Suspect]
     Active Substance: LENALIDOMIDE
     Indication: PLASMA CELL MYELOMA
     Route: 048
     Dates: start: 201405
  2. REVLIMID [Suspect]
     Active Substance: LENALIDOMIDE
     Route: 048
     Dates: start: 20151103

REACTIONS (3)
  - Ageusia [Unknown]
  - Fatigue [Unknown]
  - Gingival pain [Unknown]

NARRATIVE: CASE EVENT DATE: 20160107
